FAERS Safety Report 7249534-5 (Version None)
Quarter: 2011Q1

REPORT INFORMATION
  Report Type: 
  Country: None (occurrence: None)
  Receive Date: 20110128
  Receipt Date: 20101123
  Transmission Date: 20110831
  Serious: Yes (Hospitalization, Other)
  Sender: FDA-Public Use
  Company Number: US-BAYER-201038082NA

PATIENT
  Sex: Female
  Weight: 74.83 kg

DRUGS (21)
  1. YASMIN [Suspect]
     Indication: PREMENSTRUAL SYNDROME
  2. AMIODARONE [Concomitant]
     Indication: HEART RATE ABNORMAL
     Dosage: UNK
     Dates: start: 20090129, end: 20090131
  3. COUMADIN [Concomitant]
     Indication: DEEP VEIN THROMBOSIS
     Dosage: 5 MG, UNK
     Dates: start: 20081001, end: 20090123
  4. PEPCID [Concomitant]
     Dosage: UNK
     Dates: end: 20091030
  5. YAZ [Suspect]
     Indication: PREMENSTRUAL SYNDROME
  6. CYTOMEL [Concomitant]
     Indication: HYPOTHYROIDISM
     Dosage: UNK
     Dates: start: 20091001, end: 20100501
  7. AMOXICILLIN [Concomitant]
     Dosage: UNK
  8. UNCODEABLE ^UNCLASSIFIABLE^ [Concomitant]
     Dosage: UNK
  9. METOPROLOL [Concomitant]
     Dosage: UNK
     Dates: end: 20090131
  10. UNCODEABLE ^INVESTIGATIONAL DRUG^ [Concomitant]
     Dosage: UNK
     Dates: end: 20090201
  11. LEVOXYL [Concomitant]
     Indication: HYPOTHYROIDISM
     Dosage: UNK
     Dates: start: 20090401
  12. THYROID PREPARATIONS [Concomitant]
     Dosage: UNK
  13. COUMADIN [Concomitant]
     Dosage: UNK
     Dates: start: 20090129
  14. COUMADIN [Concomitant]
     Dosage: UNK
     Dates: start: 20080901
  15. DARVOCET [Concomitant]
     Dosage: UNK
  16. YASMIN [Suspect]
     Indication: CONTRACEPTION
     Dosage: 1 U, QD
     Dates: start: 20071001, end: 20081001
  17. NSAID'S [Concomitant]
  18. UNCODEABLE ^UNCLASSIFIABLE^ [Concomitant]
     Dosage: UNK
  19. YAZ [Suspect]
     Indication: CONTRACEPTION
     Dosage: 1 U, QD
     Dates: start: 20071001, end: 20081001
  20. OCELLA [Suspect]
     Indication: PRODUCT USED FOR UNKNOWN INDICATION
  21. PERCOCET [Concomitant]
     Dosage: UNK
     Dates: end: 20090131

REACTIONS (15)
  - DYSPNOEA [None]
  - APHASIA [None]
  - TRANSIENT ISCHAEMIC ATTACK [None]
  - DYSARTHRIA [None]
  - SYNCOPE [None]
  - HEMIANOPIA [None]
  - VIITH NERVE PARALYSIS [None]
  - DEEP VEIN THROMBOSIS [None]
  - OEDEMA PERIPHERAL [None]
  - PAIN [None]
  - BURNING SENSATION [None]
  - VISUAL ACUITY REDUCED [None]
  - THORACOTOMY [None]
  - PARTIAL SEIZURES [None]
  - DIZZINESS [None]
